FAERS Safety Report 6677604-9 (Version None)
Quarter: 2010Q2

REPORT INFORMATION
  Report Type: 
  Country: None (occurrence: None)
  Receive Date: 20100412
  Receipt Date: 20100223
  Transmission Date: 20101027
  Serious: No
  Sender: FDA-Public Use
  Company Number: DE-ALEXION-A201000216

PATIENT

DRUGS (2)
  1. SOLIRIS [Suspect]
     Indication: PAROXYSMAL NOCTURNAL HAEMOGLOBINURIA
     Dosage: 600 MG, BIWEEKLY
     Route: 042
     Dates: start: 20090506
  2. SOLIRIS [Suspect]
     Dosage: 900 MG, BIWEEKLY
     Route: 042
     Dates: end: 20100210

REACTIONS (1)
  - PREGNANCY [None]
